FAERS Safety Report 25920274 (Version 1)
Quarter: 2025Q4

REPORT INFORMATION
  Report Type: Spontaneous
  Country: CH (occurrence: CH)
  Receive Date: 20251014
  Receipt Date: 20251014
  Transmission Date: 20260117
  Serious: Yes (Death, Hospitalization, Other)
  Sender: AMGEN
  Company Number: CH-AMGEN-CHESP2025202358

PATIENT

DRUGS (1)
  1. ADALIMUMAB [Suspect]
     Active Substance: ADALIMUMAB
     Indication: Cardiac sarcoidosis
     Dosage: UNK
     Route: 065

REACTIONS (9)
  - Death [Fatal]
  - Cardiovascular disorder [Fatal]
  - Infection [Unknown]
  - Neoplasm malignant [Unknown]
  - Cardiac sarcoidosis [Unknown]
  - Arrhythmic storm [Unknown]
  - Heart transplant [Unknown]
  - Drug effective for unapproved indication [Unknown]
  - Off label use [Unknown]
